FAERS Safety Report 4429376-6 (Version None)
Quarter: 2004Q3

REPORT INFORMATION
  Report Type: 
  Country: None (occurrence: None)
  Receive Date: 20040816
  Receipt Date: 20040809
  Transmission Date: 20050211
  Serious: Yes (Hospitalization)
  Sender: FDA-Public Use
  Company Number: 2004-118790-NL

PATIENT
  Age: 68 Year
  Sex: Female

DRUGS (2)
  1. MIRTAZAPINE [Suspect]
     Indication: DEPRESSION
     Dosage: 30 MG ORAL
     Route: 048
     Dates: start: 20040722, end: 20040723
  2. BENZODIAZEPINES [Concomitant]

REACTIONS (10)
  - ALCOHOLISM [None]
  - CONFUSIONAL STATE [None]
  - DELUSION [None]
  - DRUG INTERACTION [None]
  - DRUG WITHDRAWAL SYNDROME [None]
  - HALLUCINATION, VISUAL [None]
  - HYPOTENSION [None]
  - OVERDOSE [None]
  - RESTLESSNESS [None]
  - TACHYCARDIA [None]
